FAERS Safety Report 25455960 (Version 1)
Quarter: 2025Q2

REPORT INFORMATION
  Report Type: Spontaneous
  Country: GB (occurrence: GB)
  Receive Date: 20250619
  Receipt Date: 20250619
  Transmission Date: 20250716
  Serious: Yes (Death, Other)
  Sender: AUROBINDO
  Company Number: GB-OTSUKA-2024_022103

PATIENT
  Age: 35 Year
  Sex: Male
  Weight: 70 kg

DRUGS (6)
  1. ESCITALOPRAM [Suspect]
     Active Substance: ESCITALOPRAM OXALATE
     Indication: Depression
     Route: 048
     Dates: start: 20240412
  2. ESCITALOPRAM [Suspect]
     Active Substance: ESCITALOPRAM OXALATE
     Indication: Depressed mood
     Route: 048
  3. ARIPIPRAZOLE [Suspect]
     Active Substance: ARIPIPRAZOLE
     Indication: Product used for unknown indication
     Route: 048
     Dates: start: 2020
  4. ABILIFY MAINTENA [Suspect]
     Active Substance: ARIPIPRAZOLE
     Indication: Product used for unknown indication
     Route: 065
     Dates: start: 2021
  5. OXYBATE [Suspect]
     Active Substance: OXYBATE
     Indication: Product used for unknown indication
     Route: 065
  6. KETAMINE [Suspect]
     Active Substance: KETAMINE
     Indication: Product used for unknown indication
     Route: 065

REACTIONS (2)
  - Completed suicide [Fatal]
  - Depressed mood [Unknown]

NARRATIVE: CASE EVENT DATE: 20240531
